FAERS Safety Report 9133066 (Version 1)
Quarter: 2013Q1

REPORT INFORMATION
  Report Type: Spontaneous
  Country: US (occurrence: US)
  Receive Date: 20130107
  Receipt Date: 20130107
  Transmission Date: 20140127
  Serious: Yes (Other)
  Sender: FDA-Public Use
  Company Number: US-ABBOTT-13P-163-1030006-00

PATIENT
  Sex: Male

DRUGS (2)
  1. ANDROGEL [Suspect]
     Indication: BLOOD TESTOSTERONE DECREASED
     Dates: start: 200804, end: 201001
  2. ANDROGEL [Suspect]
     Dates: start: 200804, end: 201001

REACTIONS (5)
  - Spermatozoa progressive motility decreased [Recovering/Resolving]
  - Sperm concentration decreased [Recovering/Resolving]
  - Infertility male [Unknown]
  - Pain [Unknown]
  - Emotional distress [Unknown]
